FAERS Safety Report 15770217 (Version 1)
Quarter: 2018Q4

REPORT INFORMATION
  Report Type: Spontaneous
  Country: US (occurrence: US)
  Receive Date: 20181218
  Receipt Date: 20181218
  Transmission Date: 20190205
  Serious: No
  Sender: FDA-Public Use
  Company Number: None

PATIENT

DRUGS (2)
  1. NOVOLOG [Suspect]
     Active Substance: INSULIN ASPART
  2. NOVOLOG [Suspect]
     Active Substance: INSULIN ASPART

REACTIONS (2)
  - Product dispensing error [None]
  - Transcription medication error [None]
